FAERS Safety Report 13961859 (Version 1)
Quarter: 2017Q3

REPORT INFORMATION
  Report Type: Spontaneous
  Country: US (occurrence: US)
  Receive Date: 20170912
  Receipt Date: 20170912
  Transmission Date: 20171128
  Serious: Yes (Other)
  Sender: FDA-Public Use
  Company Number: US-PFIZER INC-2017390069

PATIENT
  Age: 46 Year
  Sex: Female

DRUGS (5)
  1. BUPROPION. [Concomitant]
     Active Substance: BUPROPION
     Indication: MAJOR DEPRESSION
     Dosage: 150 MG, DAILY
     Route: 048
     Dates: start: 2015
  2. LORAZEPAM. [Concomitant]
     Active Substance: LORAZEPAM
     Indication: MAJOR DEPRESSION
     Dosage: 0.5 MG, UNK
     Route: 048
     Dates: start: 2015
  3. TRAZODONE [Concomitant]
     Active Substance: TRAZODONE HYDROCHLORIDE
     Indication: SLEEP DISORDER
     Dosage: 50 MG, 1X/DAY, AT NIGHT
     Route: 048
     Dates: start: 2015
  4. LAMOTRIGINE. [Concomitant]
     Active Substance: LAMOTRIGINE
     Indication: MAJOR DEPRESSION
     Dosage: 100 MG, 1X/DAY
     Route: 048
     Dates: start: 2015
  5. PRISTIQ EXTENDED-RELEASE [Suspect]
     Active Substance: DESVENLAFAXINE SUCCINATE
     Indication: MAJOR DEPRESSION
     Dosage: 100 MG, 1X/DAY
     Dates: start: 2015, end: 20170905

REACTIONS (6)
  - Panic attack [Unknown]
  - Feeling abnormal [Unknown]
  - Anxiety [Unknown]
  - Crying [Not Recovered/Not Resolved]
  - Bipolar disorder [Unknown]
  - Suicidal behaviour [Unknown]

NARRATIVE: CASE EVENT DATE: 2015
